FAERS Safety Report 11431102 (Version 1)
Quarter: 2015Q3

REPORT INFORMATION
  Report Type: Spontaneous
  Country: US (occurrence: US)
  Receive Date: 20150828
  Receipt Date: 20150828
  Transmission Date: 20151125
  Serious: No
  Sender: FDA-Public Use
  Company Number: PHEH2014US014537

PATIENT
  Sex: Female

DRUGS (10)
  1. ESTRADIOL. [Suspect]
     Active Substance: ESTRADIOL
     Dosage: UNK UKN, UNK
  2. VITAMIN D [Concomitant]
     Active Substance: CHOLECALCIFEROL
     Dosage: UNK UKN, QD
  3. MULTIVITAMIN                       /07423501/ [Concomitant]
     Dosage: UNK UKN, UNK
  4. PRAVASTATIN [Suspect]
     Active Substance: PRAVASTATIN\PRAVASTATIN SODIUM
     Dosage: UNK UKN, UNK
  5. CALCIUM CITRATE W/ MAGNESIUM [Concomitant]
     Dosage: UNK UKN, UNK
  6. ASTHMA                             /00083601/ [Concomitant]
     Dosage: UNK UKN, UNK
  7. VIVELLE DOT [Suspect]
     Active Substance: ESTRADIOL
     Dosage: 0.05 UKN, UNK
     Route: 062
  8. ASPIRIN. [Concomitant]
     Active Substance: ASPIRIN
     Dosage: 81 MG, UNK
  9. VITAMIIN C [Concomitant]
     Active Substance: ASCORBIC ACID
     Dosage: UNK UKN, UNK
  10. PRIN [Concomitant]
     Dosage: UNK UKN, UNK

REACTIONS (12)
  - Product adhesion issue [Unknown]
  - Alopecia [Unknown]
  - Weight increased [Unknown]
  - Night sweats [Unknown]
  - Hot flush [Unknown]
  - Headache [Unknown]
  - Menopause [Unknown]
  - Drug ineffective [Unknown]
  - Muscle spasms [Unknown]
  - Product odour abnormal [Unknown]
  - Hair texture abnormal [Unknown]
  - Product quality issue [Unknown]
